FAERS Safety Report 20626442 (Version 1)
Quarter: 2022Q1

REPORT INFORMATION
  Report Type: Report from Study
  Country: CA (occurrence: CA)
  Receive Date: 20220323
  Receipt Date: 20220323
  Transmission Date: 20220424
  Serious: Yes (Hospitalization, Other)
  Sender: FDA-Public Use
  Company Number: CA-JNJFOC-20210711885

PATIENT
  Age: 36 Year
  Sex: Female
  Weight: 79.2 kg

DRUGS (2)
  1. REMICADE [Suspect]
     Active Substance: INFLIXIMAB
     Indication: Crohn^s disease
     Dosage: ON 03/AUG/2021, THE PATIENT RECEIVED LAST DOSE. ON 28/SEP/2021, THE PATIENT RECEIVED LAST DOSE.
     Route: 042
     Dates: start: 20190215, end: 20211221
  2. REMICADE [Suspect]
     Active Substance: INFLIXIMAB
     Route: 042

REACTIONS (10)
  - Premature separation of placenta [Recovered/Resolved]
  - Exposure during pregnancy [Recovered/Resolved]
  - Retained placenta or membranes [Unknown]
  - Uterine haemorrhage [Unknown]
  - Anaemia [Unknown]
  - Localised infection [Unknown]
  - Drug level abnormal [Unknown]
  - Post procedural fever [Unknown]
  - SARS-CoV-2 test positive [Recovered/Resolved]
  - Psoriasis [Unknown]

NARRATIVE: CASE EVENT DATE: 20210101
